FAERS Safety Report 9460715 (Version 2)
Quarter: 2013Q3

REPORT INFORMATION
  Report Type: Spontaneous
  Country: MY (occurrence: None)
  Receive Date: 20130813
  Receipt Date: 20130822
  Transmission Date: 20140515
  Serious: Yes (Hospitalization)
  Sender: FDA-Public Use
  Company Number: 1837646

PATIENT
  Age: 67 Year
  Sex: Female

DRUGS (3)
  1. IMIPENEM AND CILASTATIN [Suspect]
     Indication: BURKHOLDERIA PSEUDOMALLEI INFECTION
     Dosage: 500 MG (1 HOUR)
     Route: 042
  2. MEROPENEM [Suspect]
     Indication: BURKHOLDERIA PSEUDOMALLEI INFECTION
     Route: 042
  3. MEROPENEM [Suspect]
     Indication: BURKHOLDERIA PSEUDOMALLEI INFECTION
     Route: 042

REACTIONS (5)
  - Myoclonus [None]
  - Neurotoxicity [None]
  - Drug interaction [None]
  - Convulsion [None]
  - Cross sensitivity reaction [None]
